FAERS Safety Report 8273557-0 (Version None)
Quarter: 2012Q2

REPORT INFORMATION
  Report Type: 
  Country: None (occurrence: None)
  Receive Date: 20120411
  Receipt Date: 20120110
  Transmission Date: 20120825
  Serious: No
  Sender: FDA-Public Use
  Company Number: US-TEVA-317135USA

PATIENT
  Sex: Female
  Weight: 59.02 kg

DRUGS (3)
  1. NUVIGIL [Suspect]
     Dosage: QAM
     Route: 048
     Dates: start: 20111201, end: 20111201
  2. ORAL CONTRACEPTIVE NOS [Concomitant]
     Dosage: QAM
     Route: 048
  3. SERTRALINE HYDROCHLORIDE [Concomitant]
     Dosage: QAM

REACTIONS (2)
  - MALAISE [None]
  - NAUSEA [None]
